FAERS Safety Report 8597588-6 (Version None)
Quarter: 2012Q3

REPORT INFORMATION
  Report Type: 
  Country: None (occurrence: None)
  Receive Date: 20120816
  Receipt Date: 20120807
  Transmission Date: 20120928
  Serious: Yes (Hospitalization)
  Sender: FDA-Public Use
  Company Number: FR-BAYER-2012-081727

PATIENT
  Age: 81 Year
  Sex: Female

DRUGS (5)
  1. FENOFIBRATE [Concomitant]
  2. STRESAM [Concomitant]
  3. NAPROXEN SODIUM [Suspect]
     Indication: PAIN
     Dosage: UNK
     Route: 048
     Dates: start: 20111215, end: 20111223
  4. FOSAVANCE [Concomitant]
  5. NEBIVOLOL [Concomitant]

REACTIONS (1)
  - ANAEMIA [None]
